FAERS Safety Report 9578778 (Version 1)
Quarter: 2013Q4

REPORT INFORMATION
  Report Type: Spontaneous
  Country: US (occurrence: US)
  Receive Date: 20131001
  Receipt Date: 20131001
  Transmission Date: 20140711
  Serious: No
  Sender: FDA-Public Use
  Company Number: US-AMGEN-USASP2013014623

PATIENT
  Age: 61 Year
  Sex: Male
  Weight: 204.8 kg

DRUGS (7)
  1. ENBREL [Suspect]
     Indication: PRODUCT USED FOR UNKNOWN INDICATION
     Dosage: 50 MG, 2 TIMES/WK
     Route: 058
  2. ACTOS [Concomitant]
     Dosage: 15 MG, UNK
  3. LANTUS [Concomitant]
     Dosage: 100 ML, UNK
  4. METOPROLOL TARTRATE [Concomitant]
     Dosage: 100 MG, UNK
  5. PROZAC [Concomitant]
     Dosage: 20 MG, UNK
  6. LIPITOR [Concomitant]
     Dosage: 20 MG, UNK
  7. BABY ASPIRIN [Concomitant]
     Dosage: 81 MG, UNK

REACTIONS (1)
  - Nasopharyngitis [Recovered/Resolved]
